FAERS Safety Report 8060895-X (Version None)
Quarter: 2012Q1

REPORT INFORMATION
  Report Type: 
  Country: None (occurrence: None)
  Receive Date: 20120120
  Receipt Date: 20111222
  Transmission Date: 20120608
  Serious: Yes (Other)
  Sender: FDA-Public Use
  Company Number: US-GILEAD-2011-0048455

PATIENT
  Age: 30 Year
  Sex: Female

DRUGS (4)
  1. PREZISTA [Concomitant]
     Dosage: 800 MG, QD
     Route: 048
     Dates: start: 20110810
  2. NORVIR [Concomitant]
     Indication: HIV INFECTION
     Dosage: 100 MG, QD
     Route: 048
     Dates: start: 20110805
  3. PREZISTA [Concomitant]
     Indication: HIV INFECTION
     Dosage: 400 MG, QD
     Route: 048
     Dates: start: 20110805, end: 20110810
  4. EMTRICITABINE/TENOFOVIR DISOPROXIL FUMARATE [Suspect]
     Indication: HIV INFECTION
     Dosage: 1 DF, QD
     Route: 048
     Dates: start: 20110805

REACTIONS (1)
  - ABORTION SPONTANEOUS [None]
